FAERS Safety Report 11051806 (Version 1)
Quarter: 2015Q2

REPORT INFORMATION
  Report Type: Spontaneous
  Country: US (occurrence: US)
  Receive Date: 20150421
  Receipt Date: 20150421
  Transmission Date: 20150821
  Serious: No
  Sender: FDA-Public Use
  Company Number: US-B.I. PHARMACEUTICALS,INC./RIDGEFIELD-2015-BI-19079BP

PATIENT
  Age: 81 Year
  Sex: Female
  Weight: 52 kg

DRUGS (7)
  1. PRAVASTATIN [Concomitant]
     Active Substance: PRAVASTATIN\PRAVASTATIN SODIUM
     Indication: PRODUCT USED FOR UNKNOWN INDICATION
     Dosage: 80 MG
     Route: 048
     Dates: start: 201411
  2. SERTRALINE [Concomitant]
     Active Substance: SERTRALINE HYDROCHLORIDE
     Indication: BLOOD CHOLESTEROL INCREASED
     Dosage: 50 MG
     Route: 048
     Dates: start: 201410
  3. SPIRIVA [Suspect]
     Active Substance: TIOTROPIUM BROMIDE MONOHYDRATE
     Indication: GASTROOESOPHAGEAL REFLUX DISEASE
     Dosage: 18 MCG
     Route: 055
     Dates: start: 201411
  4. ATENOLOL. [Concomitant]
     Active Substance: ATENOLOL
     Indication: DEPRESSION
     Dosage: 25 MG
     Route: 048
     Dates: start: 2014
  5. ASPIRIN. [Concomitant]
     Active Substance: ASPIRIN
     Indication: CORONARY ARTERIAL STENT INSERTION
     Dosage: 81 MG
     Route: 048
     Dates: start: 2012
  6. VITAMIN D [Concomitant]
     Active Substance: CHOLECALCIFEROL
     Indication: PRODUCT USED FOR UNKNOWN INDICATION
     Dosage: 1000 U
     Route: 048
  7. LORAZEPAM. [Concomitant]
     Active Substance: LORAZEPAM
     Indication: ANXIETY
     Dosage: 1 MG
     Route: 048

REACTIONS (5)
  - Product use issue [Unknown]
  - Trichorrhexis [Not Recovered/Not Resolved]
  - Lip dry [Not Recovered/Not Resolved]
  - Hair disorder [Recovered/Resolved]
  - Tongue coated [Not Recovered/Not Resolved]

NARRATIVE: CASE EVENT DATE: 201411
